FAERS Safety Report 6288339-9 (Version None)
Quarter: 2009Q3

REPORT INFORMATION
  Report Type: 
  Country: None (occurrence: None)
  Receive Date: 20090729
  Receipt Date: 20090720
  Transmission Date: 20100115
  Serious: Yes (Hospitalization, Other)
  Sender: FDA-Public Use
  Company Number: PHHY2009AU16636

PATIENT
  Age: 64 Year
  Sex: Female

DRUGS (4)
  1. ACLASTA [Suspect]
     Indication: OSTEOPOROSIS
     Dosage: 5 MG STAT YEARLY
     Route: 042
     Dates: start: 20090313, end: 20090313
  2. LIPITOR [Concomitant]
     Dosage: 40 MG DAILY
  3. VITAMIN B-12 [Concomitant]
  4. ACETAMINOPHEN [Concomitant]

REACTIONS (3)
  - ELECTROCARDIOGRAM ABNORMAL [None]
  - INFUSION RELATED REACTION [None]
  - MYALGIA [None]
